FAERS Safety Report 14134353 (Version 1)
Quarter: 2017Q4

REPORT INFORMATION
  Report Type: Spontaneous
  Country: US (occurrence: US)
  Receive Date: 20171027
  Receipt Date: 20171027
  Transmission Date: 20180321
  Serious: Yes (Disabling)
  Sender: FDA-Public Use
  Company Number: None

PATIENT
  Age: 67 Year
  Sex: Male

DRUGS (9)
  1. PROBIOTICS [Concomitant]
     Active Substance: PROBIOTICS NOS
  2. SINUS NASAL PUMP MIST .05% REXALL [Suspect]
     Active Substance: OXYMETAZOLINE HYDROCHLORIDE
     Indication: NASAL DECONGESTION THERAPY
     Dosage: QUANTITY:2 SPRAY(S);?
     Route: 045
     Dates: start: 20171025, end: 20171026
  3. LIPITOR [Concomitant]
     Active Substance: ATORVASTATIN CALCIUM
  4. PROTONIX [Concomitant]
     Active Substance: PANTOPRAZOLE SODIUM
  5. SAW PALMETTO [Concomitant]
     Active Substance: HERBALS\SAW PALMETTO
  6. LISINOPRIL/HCTZ [Concomitant]
     Active Substance: HYDROCHLOROTHIAZIDE\LISINOPRIL
  7. VITAMIN D3 [Concomitant]
     Active Substance: CHOLECALCIFEROL
  8. CBD OIL [Concomitant]
     Active Substance: CANNABIDIOL
  9. DAILY VITAMIN [Concomitant]
     Active Substance: VITAMINS

REACTIONS (3)
  - Toothache [None]
  - Nasal discomfort [None]
  - Sleep disorder [None]

NARRATIVE: CASE EVENT DATE: 20171026
